FAERS Safety Report 10019783 (Version 1)
Quarter: 2014Q1

REPORT INFORMATION
  Report Type: Spontaneous
  Country: JP (occurrence: JP)
  Receive Date: 20140318
  Receipt Date: 20140318
  Transmission Date: 20141002
  Serious: Yes (Other)
  Sender: FDA-Public Use
  Company Number: JP-SPECTRUM PHARMACEUTICALS, INC.-14-F-JP-00037

PATIENT
  Age: 60 Year
  Sex: Male

DRUGS (5)
  1. FLUOROURACIL [Suspect]
     Indication: RECTAL CANCER STAGE IV
     Dosage: FOLFOX REGIMEN
     Route: 042
  2. CAPECITABINE [Suspect]
     Indication: RECTAL CANCER STAGE IV
     Dosage: XELOX REGIMEN
     Route: 048
  3. OXALIPLATIN [Suspect]
     Indication: RECTAL CANCER STAGE IV
     Dosage: XELOX REGIMEN
     Route: 042
  4. OXALIPLATIN [Suspect]
     Indication: RECTAL CANCER STAGE IV
     Dosage: FOLOFOX REGIMEN
     Route: 042
  5. LEUCOVORIN /00566701/ [Suspect]
     Indication: RECTAL CANCER STAGE IV
     Dosage: FOLFOX REGIMEN
     Route: 042

REACTIONS (1)
  - Encephalopathy [Recovered/Resolved]
